FAERS Safety Report 14569567 (Version 1)
Quarter: 2018Q1

REPORT INFORMATION
  Report Type: Spontaneous
  Country: JP (occurrence: JP)
  Receive Date: 20180224
  Receipt Date: 20180224
  Transmission Date: 20180509
  Serious: Yes (Death, Hospitalization, Other)
  Sender: FDA-Public Use
  Company Number: JP-ACCORD-063798

PATIENT
  Age: 79 Year
  Sex: Male

DRUGS (1)
  1. DOCETAXEL. [Suspect]
     Active Substance: DOCETAXEL
     Indication: PROSTATE CANCER
     Dates: start: 201605

REACTIONS (8)
  - Inflammation [Unknown]
  - Pneumonitis [Unknown]
  - Ascites [Unknown]
  - Renal impairment [Unknown]
  - Sepsis [Fatal]
  - Leukopenia [Unknown]
  - Intestinal ischaemia [Unknown]
  - Bone marrow failure [Recovering/Resolving]
